FAERS Safety Report 6850256-0 (Version None)
Quarter: 2010Q3

REPORT INFORMATION
  Report Type: 
  Country: None (occurrence: None)
  Receive Date: 20100716
  Receipt Date: 20071102
  Transmission Date: 20110219
  Serious: No
  Sender: FDA-Public Use
  Company Number: US-PFIZER INC-2007086776

PATIENT
  Sex: Male

DRUGS (1)
  1. CHANTIX [Suspect]
     Indication: SMOKING CESSATION THERAPY
     Dates: start: 20070918

REACTIONS (10)
  - ANGER [None]
  - CHEST DISCOMFORT [None]
  - DEPRESSION [None]
  - DIARRHOEA [None]
  - DISTURBANCE IN ATTENTION [None]
  - DYSPNOEA [None]
  - MALAISE [None]
  - MEMORY IMPAIRMENT [None]
  - POLLAKIURIA [None]
  - WITHDRAWAL SYNDROME [None]
